FAERS Safety Report 9707485 (Version 1)
Quarter: 2013Q4

REPORT INFORMATION
  Report Type: Spontaneous
  Country: BE (occurrence: None)
  Receive Date: 20131121
  Receipt Date: 20131121
  Transmission Date: 20140711
  Serious: Yes (Hospitalization)
  Sender: FDA-Public Use
  Company Number: DSM-2013-01087

PATIENT
  Age: 87 Year
  Sex: Female
  Weight: 67 kg

DRUGS (6)
  1. AMLODIPINE BESILATE W/ OLMESARTAN MEDOXOMIL [Suspect]
     Indication: HYPERTENSION
     Dosage: (1 TABL. WHEN BP IS HIGHER THAN 160/90MMH)
     Route: 048
     Dates: start: 201102, end: 20131022
  2. ISOTEN MINOR (BISOPROLOL) (BISOPROLOL) [Concomitant]
  3. ASAFLOW (ACETYLSALICYLIC ACID) (ACETYLSALICYLIC ACID) [Concomitant]
  4. VOLTAREN (DICLOFENAC) (DICLOFENAC) [Concomitant]
  5. OMEPRAZOLE (OMEPRAZOLE) (OMEPRAZOLE) [Concomitant]
  6. FOLAVIT (FOLIC ACID) (FOLIC ACID) [Concomitant]

REACTIONS (11)
  - Diarrhoea [None]
  - Malabsorption [None]
  - Blood urea decreased [None]
  - Blood lactate dehydrogenase increased [None]
  - Vitamin D decreased [None]
  - Blood alkaline phosphatase increased [None]
  - Hypocalcaemia [None]
  - Hypokalaemia [None]
  - Hypomagnesaemia [None]
  - Hypophosphataemia [None]
  - Oedema peripheral [None]
